FAERS Safety Report 6237804-9 (Version None)
Quarter: 2009Q2

REPORT INFORMATION
  Report Type: 
  Country: None (occurrence: None)
  Receive Date: 20090617
  Receipt Date: 20090601
  Transmission Date: 20091009
  Serious: Yes (Other)
  Sender: FDA-Public Use
  Company Number: 2009RR-24508

PATIENT
  Age: 37 Year
  Sex: Male

DRUGS (4)
  1. TOPIRAMATE [Suspect]
     Indication: PARTIAL SEIZURES
     Dosage: 200 MG, QD, 100 MG, QD
  2. TOPIRAMATE [Concomitant]
  3. CARBAMAZEPINE [Concomitant]
  4. VALPROIC ACID [Concomitant]

REACTIONS (1)
  - ERECTILE DYSFUNCTION [None]
